FAERS Safety Report 17808979 (Version 1)
Quarter: 2020Q2

REPORT INFORMATION
  Report Type: Spontaneous
  Country: FR (occurrence: FR)
  Receive Date: 20200520
  Receipt Date: 20200520
  Transmission Date: 20200714
  Serious: Yes (Other)
  Sender: FDA-Public Use
  Company Number: FR-PFIZER INC-2020201087

PATIENT
  Sex: Male

DRUGS (1)
  1. XELJANZ [Suspect]
     Active Substance: TOFACITINIB CITRATE

REACTIONS (4)
  - Blood luteinising hormone increased [Unknown]
  - Breast pain [Unknown]
  - Hyperprolactinaemia [Unknown]
  - Blood follicle stimulating hormone increased [Unknown]
